FAERS Safety Report 7580064-7 (Version None)
Quarter: 2011Q2

REPORT INFORMATION
  Report Type: 
  Country: None (occurrence: None)
  Receive Date: 20110629
  Receipt Date: 20110623
  Transmission Date: 20111010
  Serious: Yes (Hospitalization)
  Sender: FDA-Public Use
  Company Number: AU-NOVOPROD-324714

PATIENT
  Age: 69 Year
  Sex: Male
  Weight: 91.3 kg

DRUGS (4)
  1. DIABEX S.R. [Concomitant]
     Dosage: 1000 MG
  2. VERPAMIL HCL [Concomitant]
     Dosage: 240 MG
  3. CRESTOR [Concomitant]
     Dosage: 10 MG
  4. NOVOLOG [Suspect]
     Indication: TYPE 2 DIABETES MELLITUS
     Dosage: 78 U, QD (25-28-25)
     Route: 058
     Dates: start: 20091027, end: 20110308

REACTIONS (4)
  - PRURITUS [None]
  - SYNCOPE [None]
  - LOSS OF CONSCIOUSNESS [None]
  - DRUG HYPERSENSITIVITY [None]
